FAERS Safety Report 14092512 (Version 1)
Quarter: 2017Q4

REPORT INFORMATION
  Report Type: Report from Study
  Country: FR (occurrence: FR)
  Receive Date: 20171016
  Receipt Date: 20171016
  Transmission Date: 20180321
  Serious: Yes (Hospitalization)
  Sender: FDA-Public Use
  Company Number: FR-ROCHE-2002492

PATIENT
  Age: 66 Year
  Sex: Female

DRUGS (7)
  1. DIFFU K [Concomitant]
     Active Substance: POTASSIUM CHLORIDE
  2. DOLIPRANE [Concomitant]
     Active Substance: ACETAMINOPHEN
     Dosage: 500
     Route: 065
  3. ATEZOLIZUMAB. [Suspect]
     Active Substance: ATEZOLIZUMAB
     Indication: RECURRENT CANCER
     Dosage: (800MG, D1+ 15) X 6 CYCLES EVERY 4WK
     Route: 042
     Dates: start: 20170202, end: 20170417
  4. BEVACIZUMAB. [Suspect]
     Active Substance: BEVACIZUMAB
     Indication: RECURRENT CANCER
     Dosage: (10MG/KG, D1 + 15)
     Route: 042
     Dates: start: 20170202, end: 20170417
  5. PEGYLATED LIPOSOMAL DOXORUBICIN [Suspect]
     Active Substance: DOXORUBICIN
     Indication: RECURRENT CANCER
     Dosage: 30 MG/M2, DAY 1
     Route: 042
     Dates: start: 20170202, end: 20170428
  6. TRAMADOL LP [Concomitant]
     Active Substance: TRAMADOL HYDROCHLORIDE
     Dosage: 100
     Route: 065
  7. CARBOPLATIN. [Suspect]
     Active Substance: CARBOPLATIN
     Indication: RECURRENT CANCER
     Dosage: (AUC = 5, DAY 1)
     Route: 042
     Dates: start: 20170202, end: 20170428

REACTIONS (1)
  - Malignant hypertension [Recovered/Resolved]

NARRATIVE: CASE EVENT DATE: 20170428
